FAERS Safety Report 8513397-8 (Version None)
Quarter: 2012Q3

REPORT INFORMATION
  Report Type: 
  Country: None (occurrence: None)
  Receive Date: 20120717
  Receipt Date: 20120705
  Transmission Date: 20120928
  Serious: Yes (Other)
  Sender: FDA-Public Use
  Company Number: FR-BRISTOL-MYERS SQUIBB COMPANY-16396574

PATIENT
  Age: 37 Year
  Sex: Female

DRUGS (2)
  1. ABILIFY [Suspect]
     Indication: BIPOLAR DISORDER
     Dosage: INITIALLY 20MG :4MAY11,STOPPED:10JAN12 DOSE REDUCED 15MG THEN 10MG IN OCT11,THEN TO 5MG IN NOV11.
     Route: 048
     Dates: start: 20110504, end: 20120110
  2. ABILIFY [Suspect]
     Indication: SCHIZOAFFECTIVE DISORDER
     Dosage: INITIALLY 20MG :4MAY11,STOPPED:10JAN12 DOSE REDUCED 15MG THEN 10MG IN OCT11,THEN TO 5MG IN NOV11.
     Route: 048
     Dates: start: 20110504, end: 20120110

REACTIONS (1)
  - MOOD ALTERED [None]
